FAERS Safety Report 24123242 (Version 1)
Quarter: 2024Q3

REPORT INFORMATION
  Report Type: Spontaneous
  Country: US (occurrence: US)
  Receive Date: 20240723
  Receipt Date: 20240723
  Transmission Date: 20241016
  Serious: No
  Sender: OTSUKA
  Company Number: US-OTSUKA-2023_021519

PATIENT
  Sex: Male
  Weight: 120.2 kg

DRUGS (5)
  1. REXULTI [Suspect]
     Active Substance: BREXPIPRAZOLE
     Indication: Depression
     Dosage: 0.25 MG
     Route: 065
  2. REXULTI [Suspect]
     Active Substance: BREXPIPRAZOLE
     Dosage: 2 MG, QD
     Route: 065
  3. REXULTI [Suspect]
     Active Substance: BREXPIPRAZOLE
     Dosage: UNK (TAPERED 1/2 MG EVERY 2 WEEKS)
     Route: 065
     Dates: end: 2023
  4. PANTOPRAZOLE [Concomitant]
     Active Substance: PANTOPRAZOLE
     Indication: Gastrooesophageal reflux disease
     Dosage: 40 MG, QD
     Route: 065
  5. TRINTELLIX [Concomitant]
     Active Substance: VORTIOXETINE HYDROBROMIDE
     Indication: Product used for unknown indication
     Dosage: 20 MG, QD
     Route: 065

REACTIONS (5)
  - Withdrawal syndrome [Not Recovered/Not Resolved]
  - Nausea [Not Recovered/Not Resolved]
  - Fatigue [Not Recovered/Not Resolved]
  - Therapy cessation [Unknown]
  - Underdose [Unknown]

NARRATIVE: CASE EVENT DATE: 20230101
